FAERS Safety Report 17451034 (Version 1)
Quarter: 2020Q1

REPORT INFORMATION
  Report Type: Spontaneous
  Country: US (occurrence: US)
  Receive Date: 20200222
  Receipt Date: 20200222
  Transmission Date: 20200409
  Serious: No
  Sender: FDA-Public Use
  Company Number: None

PATIENT
  Age: 36 Year
  Sex: Male
  Weight: 54 kg

DRUGS (1)
  1. GADAVIST [Suspect]
     Active Substance: GADOBUTROL
     Indication: MAGNETIC RESONANCE IMAGING
     Dosage: ?          OTHER FREQUENCY:INJECTION ONCE;?
     Route: 042
     Dates: start: 20200127, end: 20200127

REACTIONS (7)
  - Myalgia [None]
  - Muscle twitching [None]
  - Burning sensation [None]
  - Chest pain [None]
  - Cognitive disorder [None]
  - Tinnitus [None]
  - Dyspnoea [None]

NARRATIVE: CASE EVENT DATE: 20200127
